FAERS Safety Report 7465466-1 (Version None)
Quarter: 2011Q2

REPORT INFORMATION
  Report Type: 
  Country: None (occurrence: None)
  Receive Date: 20110509
  Receipt Date: 20110505
  Transmission Date: 20111010
  Serious: Yes (Death, Other)
  Sender: FDA-Public Use
  Company Number: BR-PFIZER INC-2011096819

PATIENT
  Age: 64 Year
  Sex: Male
  Weight: 100 kg

DRUGS (8)
  1. PIPERACILLIN [Suspect]
     Indication: RESPIRATORY FAILURE
     Dosage: UNK, 3X/DAY
     Route: 042
     Dates: start: 20110428, end: 20110428
  2. PANTOZOL [Concomitant]
     Indication: GASTRIC DISORDER
     Dosage: 40 MG, 1X/DAY
     Route: 042
  3. DIAENPAX [Concomitant]
     Indication: ANXIETY
     Dosage: 5 MG, 2X/DAY
  4. PULMICORT [Concomitant]
     Indication: RESPIRATORY FAILURE
     Dosage: UNK
  5. TARGOCID [Concomitant]
     Indication: PNEUMONIA
     Dosage: 400 MG, 1X/DAY
  6. DIAENPAX [Concomitant]
     Indication: AGITATION
  7. SOLU-MEDROL [Concomitant]
     Indication: RESPIRATORY FAILURE
     Dosage: 40 MG, 3X/DAY
     Route: 042
  8. ISCOVER [Concomitant]
     Indication: PULMONARY EMBOLISM
     Dosage: 75 MG, 1X/DAY

REACTIONS (4)
  - DEATH [None]
  - CONDITION AGGRAVATED [None]
  - ABNORMAL BEHAVIOUR [None]
  - DELIRIUM [None]
